FAERS Safety Report 25649456 (Version 4)
Quarter: 2025Q3

REPORT INFORMATION
  Report Type: Spontaneous
  Country: JP (occurrence: JP)
  Receive Date: 20250806
  Receipt Date: 20250911
  Transmission Date: 20251021
  Serious: No
  Sender: PFIZER
  Company Number: JP-PFIZER INC-PV202500092362

PATIENT
  Age: 11 Year
  Sex: Female
  Weight: 32.3 kg

DRUGS (2)
  1. NGENLA [Suspect]
     Active Substance: SOMATROGON-GHLA
     Indication: Growth hormone deficiency
     Dosage: 20 MG, WEEKLY
     Route: 058
     Dates: start: 20230731, end: 20250404
  2. HERBALS [Concomitant]
     Active Substance: HERBALS
     Indication: Aphthous ulcer

REACTIONS (1)
  - Injection site pain [Recovering/Resolving]
